FAERS Safety Report 24124314 (Version 5)
Quarter: 2024Q4

REPORT INFORMATION
  Report Type: Spontaneous
  Country: US (occurrence: US)
  Receive Date: 20240723
  Receipt Date: 20241212
  Transmission Date: 20250115
  Serious: No
  Sender: BRISTOL-MYERS SQUIBB COMPANY
  Company Number: US-BRISTOL-MYERS SQUIBB COMPANY-2024-115398

PATIENT
  Age: 62 Year
  Sex: Female
  Weight: 78.5 kg

DRUGS (8)
  1. REBLOZYL [Suspect]
     Active Substance: LUSPATERCEPT-AAMT
     Indication: Chronic myeloid leukaemia
     Route: 058
  2. REBLOZYL [Suspect]
     Active Substance: LUSPATERCEPT-AAMT
     Route: 058
     Dates: start: 20240619
  3. REBLOZYL [Suspect]
     Active Substance: LUSPATERCEPT-AAMT
     Route: 058
  4. REBLOZYL [Suspect]
     Active Substance: LUSPATERCEPT-AAMT
     Route: 058
  5. REBLOZYL [Suspect]
     Active Substance: LUSPATERCEPT-AAMT
     Route: 058
  6. FLONASE [Concomitant]
     Active Substance: FLUTICASONE PROPIONATE
     Indication: Product used for unknown indication
  7. METFORMIN [Concomitant]
     Active Substance: METFORMIN HYDROCHLORIDE
     Indication: Product used for unknown indication
  8. ZOCOR [Concomitant]
     Active Substance: SIMVASTATIN
     Indication: Product used for unknown indication

REACTIONS (4)
  - COVID-19 [Unknown]
  - Impaired quality of life [Unknown]
  - Fatigue [Unknown]
  - Off label use [Unknown]

NARRATIVE: CASE EVENT DATE: 20240619
